FAERS Safety Report 24987728 (Version 1)
Quarter: 2025Q1

REPORT INFORMATION
  Report Type: Spontaneous
  Country: US (occurrence: US)
  Receive Date: 20250219
  Receipt Date: 20250219
  Transmission Date: 20250409
  Serious: No
  Sender: AMGEN
  Company Number: US-AMGEN-USASP2025029471

PATIENT
  Age: 55 Year
  Sex: Female

DRUGS (1)
  1. REPATHA [Suspect]
     Active Substance: EVOLOCUMAB
     Indication: Product used for unknown indication
     Route: 065

REACTIONS (6)
  - Urticaria [Not Recovered/Not Resolved]
  - Scratch [Unknown]
  - Wound haemorrhage [Unknown]
  - Periorbital swelling [Unknown]
  - Injection site urticaria [Recovered/Resolved]
  - Pyrexia [Not Recovered/Not Resolved]
